FAERS Safety Report 13278343 (Version 1)
Quarter: 2017Q1

REPORT INFORMATION
  Report Type: Spontaneous
  Country: US (occurrence: US)
  Receive Date: 20170228
  Receipt Date: 20170228
  Transmission Date: 20170428
  Serious: Yes (Other)
  Sender: FDA-Public Use
  Company Number: US-IMPAX LABORATORIES, INC-2015-IPXL-02378

PATIENT
  Sex: Female

DRUGS (1)
  1. NITROFURANTOIN, MACROCRYSTALLINE IR [Suspect]
     Active Substance: NITROFURANTOIN
     Route: 065

REACTIONS (2)
  - Pulmonary fibrosis [Unknown]
  - Anaphylactic reaction [Unknown]
